FAERS Safety Report 9634236 (Version 2)
Quarter: 2013Q4

REPORT INFORMATION
  Report Type: Spontaneous
  Country: GB (occurrence: None)
  Receive Date: 20131017
  Receipt Date: 20131028
  Transmission Date: 20140711
  Serious: Yes (Other)
  Sender: FDA-Public Use
  Company Number: KAD201310-001339

PATIENT
  Age: 31 Year
  Sex: Male

DRUGS (5)
  1. RIBAVIRIN [Suspect]
     Indication: HEPATITIS C
     Dosage: TABLET,
     Route: 048
     Dates: start: 20130204
  2. INCIVO [Suspect]
     Indication: HEPATITIS C
     Dosage: THRICE DAILY
     Route: 048
     Dates: start: 20130204
  3. PEGINTERFERON ALFA-2B [Suspect]
     Indication: HEPATITIS C
     Dosage: INJECTION, ONCE A WEEK,
     Route: 058
     Dates: start: 20130204
  4. SALCATONIN (CALCITONIN) [Concomitant]
  5. NUTRITIONAL SUPPLEMENT (PEANUT OIL) [Concomitant]

REACTIONS (7)
  - Constipation [None]
  - Decreased appetite [None]
  - Migraine [None]
  - Nausea [None]
  - Pruritus [None]
  - Weight decreased [None]
  - Pruritus [None]
